FAERS Safety Report 5147731-6 (Version None)
Quarter: 2006Q4

REPORT INFORMATION
  Report Type: 
  Country: None (occurrence: None)
  Receive Date: 20061110
  Receipt Date: 20061106
  Transmission Date: 20070319
  Serious: Yes (Death)
  Sender: FDA-Public Use
  Company Number: PHRM2006FR02987

PATIENT
  Age: 80 Year
  Sex: Female

DRUGS (3)
  1. TEGRETOL [Suspect]
     Dosage: 400 MG, QD
     Route: 048
     Dates: start: 20061101, end: 20061101
  2. TEGRETOL [Suspect]
     Dosage: 400 MG, BID
     Route: 048
     Dates: start: 20061102, end: 20061102
  3. TEGRETOL [Suspect]
     Dosage: 400 MG, QD
     Route: 048
     Dates: start: 20061103, end: 20061104

REACTIONS (5)
  - APATHY [None]
  - BRONCHIAL DISORDER [None]
  - DEATH [None]
  - VOMITING [None]
  - WRONG DRUG ADMINISTERED [None]
